FAERS Safety Report 5401481-7 (Version None)
Quarter: 2007Q3

REPORT INFORMATION
  Report Type: 
  Country: None (occurrence: None)
  Receive Date: 20070731
  Receipt Date: 20060915
  Transmission Date: 20080115
  Serious: No
  Sender: FDA-Public Use
  Company Number: A0613737A

PATIENT
  Age: 48 Year
  Sex: Female
  Weight: 109.1 kg

DRUGS (1)
  1. DYAZIDE [Suspect]
     Indication: DRUG USE FOR UNKNOWN INDICATION

REACTIONS (5)
  - FACE OEDEMA [None]
  - HYPOAESTHESIA [None]
  - MUSCLE SPASMS [None]
  - OEDEMA PERIPHERAL [None]
  - PAIN IN EXTREMITY [None]
